FAERS Safety Report 5608476-9 (Version None)
Quarter: 2008Q1

REPORT INFORMATION
  Report Type: 
  Country: None (occurrence: None)
  Receive Date: 20080111
  Receipt Date: 20070522
  Transmission Date: 20080703
  Serious: Yes (Other)
  Sender: FDA-Public Use
  Company Number: HQWYE320523MAY07

PATIENT
  Age: 66 Year
  Sex: Female
  Weight: 78.09 kg

DRUGS (5)
  1. PREMPRO [Suspect]
     Indication: MENOPAUSAL SYMPTOMS
     Dosage: ORAL
     Route: 048
     Dates: start: 19980922, end: 20040204
  2. PENICILLIN [Concomitant]
  3. MULTIVIT (VITAMINS NOS) [Concomitant]
  4. ASPIRIN [Concomitant]
  5. VITAMIN E [Concomitant]

REACTIONS (1)
  - BREAST CANCER [None]
